FAERS Safety Report 5214729-9 (Version None)
Quarter: 2006Q4

REPORT INFORMATION
  Report Type: 
  Country: None (occurrence: None)
  Receive Date: 20061113
  Receipt Date: 20060821
  Transmission Date: 20070319
  Serious: Yes (Hospitalization)
  Sender: FDA-Public Use
  Company Number: US-JNJFOC-20060804902

PATIENT
  Sex: Female

DRUGS (5)
  1. LEVAQUIN [Suspect]
     Indication: BACTERAEMIA
     Dosage: 500 MG, 1 IN 1 DAY, INTRAVENOUS; SEE IMAGE
     Route: 042
     Dates: start: 20060801
  2. LEVAQUIN [Suspect]
     Indication: SINUSITIS
     Dosage: 500 MG, 1 IN 1 DAY, INTRAVENOUS; SEE IMAGE
     Route: 042
     Dates: start: 20060801
  3. LEVAQUIN [Suspect]
     Indication: BACTERAEMIA
     Dosage: 500 MG, 1 IN 1 DAY, INTRAVENOUS; SEE IMAGE
     Route: 042
     Dates: start: 20060801
  4. LEVAQUIN [Suspect]
     Indication: SINUSITIS
     Dosage: 500 MG, 1 IN 1 DAY, INTRAVENOUS; SEE IMAGE
     Route: 042
     Dates: start: 20060801
  5. VANCOMYCIN [Concomitant]

REACTIONS (1)
  - DRUG INEFFECTIVE [None]
